FAERS Safety Report 8858644 (Version 1)
Quarter: 2012Q4

REPORT INFORMATION
  Report Type: 
  Country: US (occurrence: US)
  Receive Date: 20121024
  Receipt Date: 20121024
  Transmission Date: 20130627
  Serious: Yes (Other)
  Sender: FDA-Public Use
  Company Number: US-BAYER-2012-109458

PATIENT
  Age: 36 Year
  Sex: Female

DRUGS (10)
  1. YAZ [Suspect]
     Indication: ACNE
  2. LOESTRIN FE [Concomitant]
  3. TYLENOL [Concomitant]
     Indication: PAIN
  4. VICODIN [Concomitant]
     Indication: PAIN
  5. ZYRTEC [Concomitant]
     Dosage: UNK
     Dates: start: 200904
  6. IMIPRAMINE [Concomitant]
     Dosage: 100 mg, UNK
     Dates: start: 200904
  7. ALBUTEROL [Concomitant]
     Dosage: UNK
     Dates: start: 200904
  8. EPIPEN [Concomitant]
     Dosage: UNK UNK, PRN
     Dates: start: 200904
  9. AXERT [Concomitant]
     Dosage: UNK UNK, PRN
     Dates: start: 200904
  10. MULTIVITAMIN [Concomitant]
     Dosage: UNK
     Dates: start: 200904

REACTIONS (1)
  - Deep vein thrombosis [Recovered/Resolved]
